FAERS Safety Report 8625851-9 (Version None)
Quarter: 2012Q3

REPORT INFORMATION
  Report Type: 
  Country: None (occurrence: None)
  Receive Date: 20120827
  Receipt Date: 20120611
  Transmission Date: 20120928
  Serious: No
  Sender: FDA-Public Use
  Company Number: US-JHP PHARMACEUTICALS, LLC-JHP201200304

PATIENT
  Sex: Female

DRUGS (1)
  1. DELESTROGEN [Suspect]
     Indication: HOT FLUSH
     Dosage: 10 MG MONTHLY
     Route: 030

REACTIONS (1)
  - DRUG INEFFECTIVE [None]
